APPROVED DRUG PRODUCT: RADIOGENIX SYSTEM
Active Ingredient: TECHNETIUM TC-99M SODIUM PERTECHNETATE GENERATOR
Strength: 30-1153mCi/GENERATOR
Dosage Form/Route: SOLUTION;INTRAVENOUS, INTRAVESICULAR, OPHTHALMIC
Application: N202158 | Product #001
Applicant: NORTHSTAR MEDICAL RADIOISOTOPES LLC
Approved: Feb 8, 2018 | RLD: Yes | RS: No | Type: DISCN